FAERS Safety Report 19706074 (Version 1)
Quarter: 2021Q3

REPORT INFORMATION
  Report Type: Spontaneous
  Country: DE (occurrence: DE)
  Receive Date: 20210817
  Receipt Date: 20210817
  Transmission Date: 20211014
  Serious: Yes (Hospitalization, Other)
  Sender: FDA-Public Use
  Company Number: DE-TEVA-2021-DE-1941195

PATIENT
  Age: 61 Year
  Sex: Male
  Weight: 85 kg

DRUGS (14)
  1. XIPAMID [Suspect]
     Active Substance: XIPAMIDE
     Dosage: 20 MILLIGRAM DAILY; 1?0?0?0,MEDICATION ERRORS
     Route: 048
  2. ACETYLSALICYLSAURE [Concomitant]
     Active Substance: ASPIRIN
     Dosage: 100 MILLIGRAM DAILY; 1?0?0?0
     Route: 048
  3. NALOXON/OXYCODON [Concomitant]
     Active Substance: NALOXONE HYDROCHLORIDE\OXYCODONE HYDROCHLORIDE
     Dosage: 5 | 10 MG, IF NECESSARY A MAXIMUM OF TWO TABLETS PER DAY, 1DF
     Route: 048
  4. PROPRANOLOL [Concomitant]
     Active Substance: PROPRANOLOL HYDROCHLORIDE
     Dosage: 20 MILLIGRAM DAILY; 1?0?1?0
     Route: 048
  5. LORAZEPAM. [Concomitant]
     Active Substance: LORAZEPAM
     Dosage: 2.5 MG, IF NECESSARY A MAXIMUM OF 2 TABLETS PER DAY
     Route: 060
  6. ULTIBRO BREEZHALER 85MIKROGRAMM/43MIKROGRAMM [Concomitant]
     Dosage: 1 DOSAGE FORMS DAILY; 50 | 110 UG, 1?0?0?0, CAPSULES FOR INHALATION
     Route: 055
  7. AMIODARON [Concomitant]
     Active Substance: AMIODARONE
     Dosage: 200 MILLIGRAM DAILY; 1?0?0?0
     Route: 048
  8. ORNITHINASPARTAT [Concomitant]
     Dosage: 3 GRAM DAILY; 1?0?0?0
     Route: 048
  9. TORASEMID [Suspect]
     Active Substance: TORSEMIDE
     Dosage: 10 MILLIGRAM DAILY; 20 MG, 0.5?0?0?0,MEDICATION ERRORS
     Route: 048
  10. PANTOPRAZOL [Concomitant]
     Active Substance: PANTOPRAZOLE SODIUM
     Dosage: 40 MILLIGRAM DAILY; 1?0?0?0
     Route: 048
  11. EPLERENON [Suspect]
     Active Substance: EPLERENONE
     Dosage: 50 MILLIGRAM DAILY; 1?0?0?0,MEDICATION ERRORS
     Route: 048
  12. KALINOR 1565,66MG [Concomitant]
     Dosage: 1 DOSAGE FORMS DAILY; 2500|1565.66 MG, 1?0?0?0
     Route: 048
  13. BERODUAL 0,05MG/0,02MG [Concomitant]
     Dosage: 0.02 | 0.05 UG, IF NECESSARY, METERED DOSE INHALER, 1DF
     Route: 055
  14. ROFLUMILAST. [Concomitant]
     Active Substance: ROFLUMILAST
     Dosage: .5 MILLIGRAM DAILY; 1?0?0?0
     Route: 048

REACTIONS (9)
  - Product prescribing error [Unknown]
  - Constipation [Unknown]
  - Weight decreased [Unknown]
  - Fluid intake reduced [Unknown]
  - Nausea [Unknown]
  - Angina pectoris [Unknown]
  - Dizziness [Unknown]
  - Fatigue [Unknown]
  - General physical health deterioration [Unknown]
